FAERS Safety Report 15153502 (Version 1)
Quarter: 2018Q3

REPORT INFORMATION
  Report Type: Spontaneous
  Country: JP (occurrence: JP)
  Receive Date: 20180717
  Receipt Date: 20180717
  Transmission Date: 20181010
  Serious: Yes (Death, Hospitalization, Other)
  Sender: FDA-Public Use
  Company Number: JP-TEVA-2018-JP-926300

PATIENT
  Age: 83 Year
  Sex: Female

DRUGS (3)
  1. TOREMIFENE [Suspect]
     Active Substance: TOREMIFENE
     Indication: BREAST CANCER METASTATIC
     Route: 065
  2. LETROZOLE. [Suspect]
     Active Substance: LETROZOLE
     Indication: BREAST CANCER METASTATIC
     Route: 065
  3. ZOLEDRONATE [Suspect]
     Active Substance: ZOLEDRONIC ACID
     Indication: BREAST CANCER METASTATIC
     Route: 065

REACTIONS (6)
  - Osteomyelitis [Unknown]
  - Shock [Unknown]
  - Mediastinitis [Unknown]
  - Osteonecrosis of jaw [Unknown]
  - Renal impairment [Recovered/Resolved]
  - Sepsis [Fatal]
